FAERS Safety Report 14281331 (Version 6)
Quarter: 2020Q4

REPORT INFORMATION
  Report Type: Other
  Country: CA (occurrence: CA)
  Receive Date: 20171213
  Receipt Date: 20201106
  Transmission Date: 20210113
  Serious: Yes (Hospitalization, Other)
  Sender: FDA-Public Use
  Company Number: CA-APOTEX-2017AP022289

PATIENT
  Age: 15 Year
  Sex: Female

DRUGS (18)
  1. L-ASPARAGINASE [Suspect]
     Active Substance: ASPARAGINASE
     Indication: CHEMOTHERAPY
     Dosage: UNK
     Route: 030
  2. VINCRISTINE [Concomitant]
     Active Substance: VINCRISTINE
     Indication: ACUTE LYMPHOCYTIC LEUKAEMIA
     Dosage: UNK
     Route: 065
  3. MERCAPTOPURINE. [Concomitant]
     Active Substance: MERCAPTOPURINE
     Indication: PRODUCT USED FOR UNKNOWN INDICATION
     Route: 065
  4. APO-LAMOTRIGINE [Suspect]
     Active Substance: LAMOTRIGINE
     Indication: EPILEPSY
     Dosage: UNK
     Route: 065
  5. METHOTREXATE. [Suspect]
     Active Substance: METHOTREXATE
     Indication: PROPHYLAXIS
     Dosage: UNK
     Route: 037
  6. APO-CLOBAZAM [Suspect]
     Active Substance: CLOBAZAM
     Indication: EPILEPSY
     Dosage: UNK
     Route: 065
  7. PREDNISONE. [Suspect]
     Active Substance: PREDNISONE
     Indication: CHEMOTHERAPY
     Dosage: UNK
     Route: 065
  8. PREDNISONE. [Concomitant]
     Active Substance: PREDNISONE
     Indication: ACUTE LYMPHOCYTIC LEUKAEMIA
     Dosage: UNK
     Route: 065
  9. CARBAMAZEPINE. [Suspect]
     Active Substance: CARBAMAZEPINE
     Indication: TEMPORAL LOBE EPILEPSY
  10. METHOTREXATE. [Suspect]
     Active Substance: METHOTREXATE
     Indication: PRODUCT USED FOR UNKNOWN INDICATION
  11. VIGABATRIN. [Suspect]
     Active Substance: VIGABATRIN
     Indication: EPILEPSY
     Dosage: UNK
     Route: 065
  12. 6-MERCAPTOPURINE MONOHYDRATE [Suspect]
     Active Substance: MERCAPTOPURINE
     Indication: CHEMOTHERAPY
     Dosage: UNK
     Route: 065
  13. VINCRISTINE SULFATE. [Suspect]
     Active Substance: VINCRISTINE SULFATE
     Indication: CHEMOTHERAPY
     Dosage: UNK
     Route: 065
  14. METHOTREXATE. [Suspect]
     Active Substance: METHOTREXATE
     Indication: ACUTE LYMPHOCYTIC LEUKAEMIA
     Dosage: UNK
     Route: 065
  15. CARBAMAZEPINE. [Suspect]
     Active Substance: CARBAMAZEPINE
     Indication: EPILEPSY
     Dosage: UNK
     Route: 065
  16. MERCAPTOPURINE. [Suspect]
     Active Substance: MERCAPTOPURINE
     Indication: CHEMOTHERAPY
     Dosage: UNK
     Route: 065
  17. VINCRISTINE [Concomitant]
     Active Substance: VINCRISTINE
     Indication: EPILEPSY
  18. L-ASPARAGINASE [Concomitant]
     Active Substance: ASPARAGINASE
     Indication: ACUTE LYMPHOCYTIC LEUKAEMIA
     Dosage: UNK
     Route: 065

REACTIONS (8)
  - Haemangioma [Recovered/Resolved]
  - Drug resistance [Recovered/Resolved]
  - Partial seizures [Recovered/Resolved]
  - Haemorrhage [Recovered/Resolved]
  - Drug ineffective [Recovered/Resolved]
  - Neurotoxicity [Recovered/Resolved]
  - Temporal lobe epilepsy [Recovered/Resolved]
  - Epilepsy [Recovered/Resolved]
